FAERS Safety Report 24242454 (Version 1)
Quarter: 2024Q3

REPORT INFORMATION
  Report Type: Spontaneous
  Country: FR (occurrence: FR)
  Receive Date: 20240823
  Receipt Date: 20240823
  Transmission Date: 20241017
  Serious: Yes (Other)
  Sender: NOVITIUM PHARMA
  Company Number: FR-NOVITIUMPHARMA-2024FRNVP01663

PATIENT
  Age: 35 Year
  Sex: Female

DRUGS (5)
  1. PREDNISONE [Suspect]
     Active Substance: PREDNISONE
     Indication: Complication of pregnancy
  2. HYDROXYCHLOROQUINE SULFATE [Suspect]
     Active Substance: HYDROXYCHLOROQUINE SULFATE
     Indication: Complication of pregnancy
  3. ASPIRIN [Concomitant]
     Active Substance: ASPIRIN
     Indication: Complication of pregnancy
  4. Immune-globulin [Concomitant]
     Indication: Complication of pregnancy
  5. METHYLDOPA [Concomitant]
     Active Substance: METHYLDOPA
     Indication: Complication of pregnancy

REACTIONS (2)
  - Abortion spontaneous [Unknown]
  - Exposure during pregnancy [Unknown]
